FAERS Safety Report 16661923 (Version 1)
Quarter: 2019Q3

REPORT INFORMATION
  Report Type: Spontaneous
  Country: US (occurrence: US)
  Receive Date: 20190802
  Receipt Date: 20190802
  Transmission Date: 20191004
  Serious: No
  Sender: FDA-Public Use
  Company Number: US-SUNOVION-2019SUN003125

PATIENT

DRUGS (1)
  1. LATUDA [Suspect]
     Active Substance: LURASIDONE HYDROCHLORIDE
     Dosage: LOW DOSE, MORNING
     Route: 048

REACTIONS (6)
  - Headache [Unknown]
  - Malaise [Unknown]
  - Drug withdrawal syndrome [Unknown]
  - Product dose omission [Unknown]
  - Mania [Unknown]
  - Insomnia [Unknown]
